FAERS Safety Report 18440468 (Version 1)
Quarter: 2020Q4

REPORT INFORMATION
  Report Type: Spontaneous
  Country: JP (occurrence: JP)
  Receive Date: 20201029
  Receipt Date: 20201029
  Transmission Date: 20210114
  Serious: Yes (Life-Threatening, Hospitalization)
  Sender: FDA-Public Use
  Company Number: JP-MYLANLABS-2020M1090224

PATIENT
  Age: 59 Year
  Sex: Male

DRUGS (4)
  1. BLEOMYCIN [Suspect]
     Active Substance: BLEOMYCIN SULFATE
     Indication: PERICARDITIS MALIGNANT
     Dosage: INTRAPERICARDIAL INSTILLATION OF BLEOMYCIN FOLLOWING PERICARDIAL DRAINAGE WAS PERFORMED
     Route: 032
  2. METHYLPREDNISOLONE. [Suspect]
     Active Substance: METHYLPREDNISOLONE
     Indication: PNEUMONITIS
     Dosage: 1000 MILLIGRAM, QD, PULSE THERAPY
     Route: 065
  3. PEMBROLIZUMAB. [Suspect]
     Active Substance: PEMBROLIZUMAB
     Indication: NON-SMALL CELL LUNG CANCER RECURRENT
     Dosage: 200 MILLIGRAM, THIRD-LINE TREATMENT
     Route: 065
  4. PREDNISOLONE. [Suspect]
     Active Substance: PREDNISOLONE
     Indication: PNEUMONITIS
     Dosage: 80 MILLIGRAM, QD, MAINTENANCE THERAPY
     Route: 065

REACTIONS (5)
  - Bronchiectasis [Recovering/Resolving]
  - Diffuse alveolar damage [Recovering/Resolving]
  - Respiratory failure [Recovering/Resolving]
  - Drug ineffective [Unknown]
  - Pneumonitis [Recovering/Resolving]
